FAERS Safety Report 24166361 (Version 1)
Quarter: 2024Q3

REPORT INFORMATION
  Report Type: Spontaneous
  Country: DE (occurrence: DE)
  Receive Date: 20240802
  Receipt Date: 20240802
  Transmission Date: 20241016
  Serious: No
  Sender: ALKEM
  Company Number: None

PATIENT
  Age: 39 Year
  Sex: Female
  Weight: 52 kg

DRUGS (2)
  1. GABAPENTIN [Suspect]
     Active Substance: GABAPENTIN
     Indication: Hereditary motor and sensory neuropathy
     Dosage: 2000 MILLIGRAM, QD ( EVERY 1 DAY)
     Route: 048
     Dates: start: 20210901, end: 20240101
  2. LAMOTRIGINE [Suspect]
     Active Substance: LAMOTRIGINE
     Indication: Hereditary motor and sensory neuropathy
     Dosage: 125 MILLIGRAM, BID ( EVERY 0.5 DAY)
     Route: 048
     Dates: start: 20210901, end: 20240101

REACTIONS (4)
  - Hair texture abnormal [Recovered/Resolved]
  - Trichorrhexis [Recovered/Resolved]
  - Alopecia [Recovered/Resolved]
  - Alopecia [Recovered/Resolved]

NARRATIVE: CASE EVENT DATE: 20211201
